FAERS Safety Report 9817835 (Version 6)
Quarter: 2014Q3

REPORT INFORMATION
  Report Type: Spontaneous
  Country: US (occurrence: US)
  Receive Date: 20140115
  Receipt Date: 20140929
  Transmission Date: 20150326
  Serious: Yes (Hospitalization, Disabling, Other)
  Sender: FDA-Public Use
  Company Number: US-009507513-1401USA002075

PATIENT
  Sex: Female
  Weight: 56.69 kg

DRUGS (2)
  1. FOSAMAX [Suspect]
     Active Substance: ALENDRONATE SODIUM
     Indication: OSTEOPOROSIS
     Dosage: 70 MG, QW
     Route: 048
     Dates: start: 20060219
  2. FOSAMAX PLUS D [Suspect]
     Active Substance: ALENDRONATE SODIUM\CHOLECALCIFEROL
     Dosage: 70 MG/2800 IU, QW
     Route: 048
     Dates: start: 20070413, end: 20100101

REACTIONS (27)
  - Incontinence [Unknown]
  - Hypertension [Unknown]
  - Bone debridement [Unknown]
  - Osteoarthritis [Unknown]
  - Dysarthria [Unknown]
  - Diabetes mellitus [Unknown]
  - Oral surgery [Unknown]
  - Cardiac failure congestive [Unknown]
  - Carotid arteriosclerosis [Unknown]
  - Gastrooesophageal reflux disease [Unknown]
  - Oroantral fistula [Unknown]
  - Clostridium difficile colitis [Recovered/Resolved]
  - Hyperlipidaemia [Unknown]
  - Peptic ulcer [Unknown]
  - Drug ineffective [Unknown]
  - Oral infection [Unknown]
  - Atrial fibrillation [Unknown]
  - Osteomyelitis [Unknown]
  - Anaemia [Unknown]
  - Aortic stenosis [Unknown]
  - Coronary arterial stent insertion [Unknown]
  - Embolic stroke [Unknown]
  - Duodenal ulcer haemorrhage [Recovered/Resolved]
  - Osteonecrosis of jaw [Not Recovered/Not Resolved]
  - Stomatitis [Unknown]
  - Carotid artery stenosis [Unknown]
  - Gastritis [Unknown]

NARRATIVE: CASE EVENT DATE: 201110
